FAERS Safety Report 4725671-1 (Version None)
Quarter: 2005Q3

REPORT INFORMATION
  Report Type: 
  Country: None (occurrence: None)
  Receive Date: 20050727
  Receipt Date: 20050718
  Transmission Date: 20060218
  Serious: Yes (Other)
  Sender: FDA-Public Use
  Company Number: PHBS2005SG10249

PATIENT
  Age: 66 Year

DRUGS (4)
  1. DEXAMETHASONE [Concomitant]
     Dosage: 32 MG/D
  2. DEXAMETHASONE [Concomitant]
     Dosage: 32 MG/2 WEEKS
  3. THALIDOMIDE [Concomitant]
  4. ZOMETA [Suspect]
     Indication: MULTIPLE MYELOMA
     Route: 042
     Dates: end: 20040701

REACTIONS (2)
  - ASEPTIC NECROSIS BONE [None]
  - OSTEOMYELITIS [None]
